FAERS Safety Report 6519848-2 (Version None)
Quarter: 2009Q4

REPORT INFORMATION
  Report Type: 
  Country: None (occurrence: None)
  Receive Date: 20091228
  Receipt Date: 20091228
  Transmission Date: 20100525
  Serious: Yes (Other)
  Sender: FDA-Public Use
  Company Number: None

PATIENT
  Age: 43 Year
  Sex: Female
  Weight: 113.8529 kg

DRUGS (2)
  1. MAXZIDE [Suspect]
     Dosage: PO
     Route: 048
  2. ALDACTONE [Suspect]
     Dosage: PO
     Route: 048

REACTIONS (14)
  - ABDOMINAL PAIN [None]
  - ANORECTAL DISCOMFORT [None]
  - DECREASED APPETITE [None]
  - DOCUMENTED HYPERSENSITIVITY TO ADMINISTERED DRUG [None]
  - DRUG HYPERSENSITIVITY [None]
  - FEAR [None]
  - HEADACHE [None]
  - HEARING IMPAIRED [None]
  - INJURY [None]
  - IRRITABLE BOWEL SYNDROME [None]
  - MULTI-ORGAN DISORDER [None]
  - PRURITUS [None]
  - VISION BLURRED [None]
  - VULVOVAGINAL BURNING SENSATION [None]
